FAERS Safety Report 4862285-7 (Version None)
Quarter: 2005Q4

REPORT INFORMATION
  Report Type: 
  Country: None (occurrence: None)
  Receive Date: 20051201
  Receipt Date: 20050716
  Transmission Date: 20060501
  Serious: No
  Sender: FDA-Public Use
  Company Number: 2005PV000425

PATIENT
  Age: 62 Year
  Sex: Female
  Weight: 92.9874 kg

DRUGS (7)
  1. BYETTA [Suspect]
     Indication: DIABETES MELLITUS NON-INSULIN-DEPENDENT
     Dosage: 5 UG;BID;SC
     Route: 058
     Dates: start: 20050612
  2. AMARYL [Concomitant]
  3. PREMARIN [Concomitant]
  4. SYNTHROID [Concomitant]
  5. DIOVAN [Concomitant]
  6. METFORMIN HCL [Concomitant]
  7. CELEBREX [Concomitant]

REACTIONS (4)
  - DECREASED APPETITE [None]
  - INJECTION SITE BRUISING [None]
  - INJECTION SITE ERYTHEMA [None]
  - INJECTION SITE IRRITATION [None]
